FAERS Safety Report 6296367-2 (Version None)
Quarter: 2009Q3

REPORT INFORMATION
  Report Type: 
  Country: None (occurrence: None)
  Receive Date: 20090804
  Receipt Date: 20090729
  Transmission Date: 20100115
  Serious: Yes (Death)
  Sender: FDA-Public Use
  Company Number: PHHY2009JP31680

PATIENT
  Sex: Male

DRUGS (6)
  1. DIOVAN [Suspect]
     Indication: HYPERTENSION
     Dosage: 80 MG, BID
     Route: 048
     Dates: start: 20070925, end: 20080223
  2. MAINTATE [Concomitant]
     Indication: HYPERTENSION
     Dosage: UNK
     Route: 048
     Dates: start: 20071023, end: 20080223
  3. PLETAL [Concomitant]
     Dosage: UNK
     Route: 048
     Dates: start: 20070828, end: 20080212
  4. LASIX [Concomitant]
     Dosage: UNK
     Route: 048
     Dates: start: 20080205, end: 20080223
  5. ALDACTONE [Concomitant]
     Dosage: UNK
     Route: 048
     Dates: start: 20080205, end: 20080223
  6. UFT [Concomitant]
     Dosage: UNK
     Dates: start: 20080223, end: 20080223

REACTIONS (1)
  - HEPATIC NEOPLASM MALIGNANT [None]
